FAERS Safety Report 19927767 (Version 1)
Quarter: 2021Q4

REPORT INFORMATION
  Report Type: Spontaneous
  Country: CA (occurrence: CA)
  Receive Date: 20211007
  Receipt Date: 20211007
  Transmission Date: 20220303
  Serious: Yes (Life-Threatening, Other)
  Sender: FDA-Public Use
  Company Number: CA-009507513-2109CAN007065

PATIENT
  Sex: Male

DRUGS (1)
  1. STROMECTOL [Suspect]
     Active Substance: IVERMECTIN
     Indication: Infection parasitic
     Dosage: 12 MILLIGRAM (4 TABLETS ), ONCE DAILY
     Route: 048
     Dates: start: 20210508

REACTIONS (6)
  - Treatment delayed [Unknown]
  - Haemorrhage urinary tract [Unknown]
  - Infection parasitic [Unknown]
  - Product use in unapproved indication [Unknown]
  - Product prescribing error [Unknown]
  - Product availability issue [Unknown]

NARRATIVE: CASE EVENT DATE: 20210101
